FAERS Safety Report 21919156 (Version 1)
Quarter: 2023Q1

REPORT INFORMATION
  Report Type: Spontaneous
  Country: US (occurrence: None)
  Receive Date: 20230126
  Receipt Date: 20230126
  Transmission Date: 20230417
  Serious: Yes (Hospitalization)
  Sender: FDA-Public Use
  Company Number: None

PATIENT
  Sex: Female

DRUGS (1)
  1. HUMIRA [Suspect]
     Active Substance: ADALIMUMAB
     Indication: Hidradenitis
     Dosage: 40MG OTHER SUBCUTANEOUS
     Route: 058
     Dates: start: 202211

REACTIONS (3)
  - Myocardial infarction [None]
  - Hypertension [None]
  - Electrocardiogram abnormal [None]
